FAERS Safety Report 8299086 (Version 3)
Quarter: 2013Q1

REPORT INFORMATION
  Report Type: Spontaneous
  Country: JP (occurrence: JP)
  Receive Date: 20111219
  Receipt Date: 20130130
  Transmission Date: 20140127
  Serious: Yes (Life-Threatening, Other)
  Sender: FDA-Public Use
  Company Number: JP-TEVA-313959ISR

PATIENT
  Age: 23 Year
  Sex: Female

DRUGS (3)
  1. CISPLATIN [Suspect]
     Indication: OVARIAN GERM CELL ENDODERMAL SINUS TUMOUR STAGE III
     Dosage: DAYS 1-5
  2. ETOPOSIDE [Suspect]
     Indication: OVARIAN GERM CELL ENDODERMAL SINUS TUMOUR STAGE III
     Dosage: DAYS 1-5
  3. BLEOMYCIN [Suspect]
     Indication: OVARIAN GERM CELL ENDODERMAL SINUS TUMOUR STAGE III
     Dosage: DAYS 2,9,16

REACTIONS (7)
  - Pulmonary fibrosis [Recovered/Resolved]
  - Left ventricular dysfunction [Recovered/Resolved]
  - Tumour lysis syndrome [Recovered/Resolved]
  - Hydronephrosis [Recovered/Resolved]
  - Renal failure acute [Recovered/Resolved]
  - Febrile neutropenia [Recovered/Resolved]
  - Cardiac failure congestive [Unknown]
